FAERS Safety Report 6812067-1 (Version None)
Quarter: 2010Q2

REPORT INFORMATION
  Report Type: 
  Country: None (occurrence: None)
  Receive Date: 20100628
  Receipt Date: 20100609
  Transmission Date: 20101027
  Serious: Yes (Hospitalization)
  Sender: FDA-Public Use
  Company Number: CV20100301

PATIENT
  Age: 36 Year
  Sex: Female

DRUGS (11)
  1. PROPOFOL [Suspect]
     Indication: INDUCTION OF ANAESTHESIA
     Dates: start: 20091217
  2. ATRACURIUM HOSPIRA (ATRACURIUM) (ATRACURIUM) [Concomitant]
  3. ULTIVA (REMIFENTANIL HYDROCHLORIDE) (REMIFENTANIL HYDROCHLORIDE) [Concomitant]
  4. NORMACOL (BACTRIM) (BACTRIM) [Concomitant]
  5. BETADINE (POVIDONE-IODINE) (POVIDONE-IODINE) [Concomitant]
  6. NAROPEINE (ROPIVACAINE HYDROCHLORIDE) (ROPIVACAINE HYDROCHLORIDE) [Concomitant]
  7. DROPEPTAN (DROPERIDOL) (DROPERIDOL) [Concomitant]
  8. KETAMINE PANPHARMA (KETAMINE HYDROCHLORIDE) (KETAMINE HYDROCHLORIDE) [Concomitant]
  9. AUGMANTIN (AMOXI-CLAVULANICO) (AMOXI-CLAVULANICO) [Concomitant]
  10. MORPHIN LAVOISIER (MORPHINE) (MORPHINE) [Concomitant]
  11. KALINOX (ENTONOX) (ETONOX) [Concomitant]

REACTIONS (2)
  - LYMPHOPENIA [None]
  - RENAL FAILURE ACUTE [None]
